FAERS Safety Report 4711089-4 (Version None)
Quarter: 2005Q3

REPORT INFORMATION
  Report Type: 
  Country: None (occurrence: None)
  Receive Date: 20050708
  Receipt Date: 20050628
  Transmission Date: 20060218
  Serious: Yes (Hospitalization, Other)
  Sender: FDA-Public Use
  Company Number: 2004206945NO

PATIENT
  Age: 86 Year
  Sex: Female

DRUGS (1)
  1. XALATAN [Suspect]
     Indication: GLAUCOMA
     Dosage: OPHTHALMIC
     Route: 047
     Dates: start: 20030101, end: 20040101

REACTIONS (11)
  - EYE DISORDER [None]
  - EYE PAIN [None]
  - EYELID DISORDER [None]
  - FEMUR FRACTURE [None]
  - LACRIMATION INCREASED [None]
  - NEOPLASM MALIGNANT [None]
  - PAIN [None]
  - RETINAL DEPIGMENTATION [None]
  - SKIN DISCOLOURATION [None]
  - SYNCOPE [None]
  - VISUAL ACUITY REDUCED [None]
